FAERS Safety Report 5033186-9 (Version None)
Quarter: 2006Q2

REPORT INFORMATION
  Report Type: 
  Country: None (occurrence: None)
  Receive Date: 20060620
  Receipt Date: 20060612
  Transmission Date: 20061013
  Serious: Yes (Death)
  Sender: FDA-Public Use
  Company Number: 2006-143724-NL

PATIENT
  Age: 78 Year
  Sex: Male

DRUGS (6)
  1. DANAPAROID SODIUM [Suspect]
     Indication: DISSEMINATED INTRAVASCULAR COAGULATION
     Dosage: INTRAVENOUS (NOS)
     Route: 042
     Dates: start: 20060124, end: 20060219
  2. ANTITHROMBIN III [Concomitant]
  3. SIVELESTAT [Concomitant]
  4. CIPROFLOXACIN HYDROCHLORIDE [Concomitant]
  5. PRIMAXIN [Concomitant]
  6. VANCOMYCIN [Concomitant]

REACTIONS (3)
  - DEHYDRATION [None]
  - GASTROINTESTINAL HAEMORRHAGE [None]
  - INFECTION [None]
